FAERS Safety Report 5471089-6 (Version None)
Quarter: 2007Q3

REPORT INFORMATION
  Report Type: 
  Country: None (occurrence: None)
  Receive Date: 20070928
  Receipt Date: 20070926
  Transmission Date: 20080115
  Serious: No
  Sender: FDA-Public Use
  Company Number: US-ASTRAZENECA-2006UW24166

PATIENT
  Age: 27588 Day
  Sex: Male
  Weight: 63.6 kg

DRUGS (3)
  1. SEROQUEL [Suspect]
     Indication: SLEEP DISORDER
     Route: 048
  2. SEROQUEL [Suspect]
     Route: 048
     Dates: start: 20000418
  3. ZYPREXA [Suspect]
     Dosage: 5 MG + 2.5 MG
     Dates: start: 20001201, end: 20040301

REACTIONS (1)
  - HYPERGLYCAEMIA [None]
